FAERS Safety Report 14529448 (Version 2)
Quarter: 2018Q1

REPORT INFORMATION
  Report Type: Spontaneous
  Country: US (occurrence: US)
  Receive Date: 20180214
  Receipt Date: 20180330
  Transmission Date: 20180509
  Serious: No
  Sender: FDA-Public Use
  Company Number: US-ASTRAZENECA-2018SE09893

PATIENT
  Sex: Female
  Weight: 55.8 kg

DRUGS (2)
  1. SYMBICORT [Suspect]
     Active Substance: BUDESONIDE\FORMOTEROL FUMARATE DIHYDRATE
     Indication: CHRONIC OBSTRUCTIVE PULMONARY DISEASE
     Dosage: 80/4.5 MCG, TWO TIMES A DAY
     Route: 055
     Dates: start: 2017
  2. EFFEXOR [Concomitant]
     Active Substance: VENLAFAXINE HYDROCHLORIDE
     Indication: BURNING FEET SYNDROME
     Route: 048

REACTIONS (10)
  - Underdose [Unknown]
  - Memory impairment [Unknown]
  - Circumstance or information capable of leading to medication error [Unknown]
  - Device failure [Unknown]
  - Device malfunction [Unknown]
  - Aggression [Unknown]
  - Intentional device misuse [Unknown]
  - Off label use [Unknown]
  - Confusional state [Unknown]
  - Stress [Not Recovered/Not Resolved]
